FAERS Safety Report 7802359-1 (Version None)
Quarter: 2011Q4

REPORT INFORMATION
  Report Type: 
  Country: None (occurrence: None)
  Receive Date: 20111007
  Receipt Date: 20110922
  Transmission Date: 20120403
  Serious: Yes (Death, Life-Threatening, Hospitalization)
  Sender: FDA-Public Use
  Company Number: JP-ROCHE-591435

PATIENT
  Sex: Male
  Weight: 44.5 kg

DRUGS (25)
  1. ACTEMRA [Suspect]
     Route: 041
     Dates: start: 20081024, end: 20081024
  2. PREDNISOLONE [Suspect]
     Route: 048
     Dates: start: 20090114, end: 20090205
  3. FELBINAC [Concomitant]
     Dosage: FORM: TAPE, DRUG: SELTOUCH(FELBINAC)
     Route: 061
  4. ACTEMRA [Suspect]
     Route: 041
     Dates: start: 20090403, end: 20090403
  5. MIGLITOL [Concomitant]
     Dosage: DRUG: SEIBULE (MIGLITOL)
     Route: 048
  6. ACTEMRA [Suspect]
     Route: 041
     Dates: start: 20100223, end: 20100223
  7. MUCOSTA [Concomitant]
     Dosage: FORMULATION: PERORAL AGENT
     Route: 048
  8. ENBREL [Concomitant]
     Dosage: DOSAGE IS UNCERTAIN.
     Route: 058
     Dates: start: 20090529, end: 20100112
  9. ACTEMRA [Suspect]
     Route: 041
     Dates: start: 20081119, end: 20081119
  10. METHOTREXATE SODIUM [Suspect]
     Indication: RHEUMATOID ARTHRITIS
     Route: 048
  11. PREDNISOLONE [Suspect]
     Indication: RHEUMATOID ARTHRITIS
     Route: 048
  12. ACTEMRA [Suspect]
     Route: 041
     Dates: start: 20090206, end: 20090206
  13. PREDNISOLONE [Suspect]
     Route: 048
     Dates: start: 20090206, end: 20090306
  14. PREDNISOLONE [Suspect]
     Route: 048
     Dates: start: 20090307, end: 20090807
  15. PREDNISOLONE [Suspect]
     Route: 048
  16. ACTEMRA [Suspect]
     Indication: RHEUMATOID ARTHRITIS
     Route: 041
     Dates: start: 20080827, end: 20080827
  17. ACTEMRA [Suspect]
     Route: 041
     Dates: start: 20090114, end: 20090114
  18. RIMATIL [Concomitant]
     Route: 048
  19. ACTEMRA [Suspect]
     Route: 041
     Dates: start: 20080930, end: 20080930
  20. ACTEMRA [Suspect]
     Route: 041
     Dates: start: 20081217, end: 20081217
  21. ACTEMRA [Suspect]
     Route: 041
     Dates: start: 20090306, end: 20090306
  22. ISONIAZID [Concomitant]
     Dosage: FORMULATION: PERORAL AGENT
     Route: 048
  23. VOLTAREN [Concomitant]
     Dosage: DOSE FORM: OINTMENT AND CREAM
     Route: 061
  24. LOXONIN [Concomitant]
     Dosage: FORMULATION: PERORAL AGENT
     Route: 048
  25. LANSOPRAZOLE [Concomitant]
     Route: 048

REACTIONS (11)
  - DEATH [None]
  - C-REACTIVE PROTEIN INCREASED [None]
  - DRUG INEFFECTIVE [None]
  - BRONCHITIS [None]
  - ACUTE RESPIRATORY FAILURE [None]
  - PULMONARY EMBOLISM [None]
  - MARASMUS [None]
  - SQUAMOUS CELL CARCINOMA OF SKIN [None]
  - SKIN CANCER [None]
  - RESPIRATORY FAILURE [None]
  - CEREBROVASCULAR DISORDER [None]
